FAERS Safety Report 10083124 (Version 1)
Quarter: 2014Q2

REPORT INFORMATION
  Report Type: Spontaneous
  Country: US (occurrence: US)
  Receive Date: 20140417
  Receipt Date: 20140417
  Transmission Date: 20141212
  Serious: No
  Sender: FDA-Public Use
  Company Number: US-BIOGENIDEC-2014BI034723

PATIENT
  Sex: Male

DRUGS (1)
  1. AVONEX [Suspect]
     Indication: PRODUCT USED FOR UNKNOWN INDICATION
     Route: 030
     Dates: start: 20131011

REACTIONS (5)
  - Paralysis [Unknown]
  - Central nervous system lesion [Unknown]
  - Off label use [Not Recovered/Not Resolved]
  - Myelitis transverse [Not Recovered/Not Resolved]
  - CSF oligoclonal band present [Unknown]
